FAERS Safety Report 13411994 (Version 3)
Quarter: 2019Q3

REPORT INFORMATION
  Report Type: Spontaneous
  Country: US (occurrence: US)
  Receive Date: 20170406
  Receipt Date: 20190726
  Transmission Date: 20191004
  Serious: No
  Sender: FDA-Public Use
  Company Number: US-JNJFOC-20170315385

PATIENT
  Sex: Male

DRUGS (1)
  1. RISPERIDONE. [Suspect]
     Active Substance: RISPERIDONE
     Indication: PSYCHOTIC DISORDER
     Dosage: VARIOUS DOSES OF 1 MG TWICE DAILY AND 2 MG DAILY
     Route: 048
     Dates: start: 20080205, end: 20090806

REACTIONS (3)
  - Therapy cessation [Unknown]
  - Gynaecomastia [Unknown]
  - Emotional distress [Unknown]

NARRATIVE: CASE EVENT DATE: 2010
